FAERS Safety Report 9286573 (Version 1)
Quarter: 2013Q2

REPORT INFORMATION
  Report Type: Spontaneous
  Country: CA (occurrence: CA)
  Receive Date: 20130513
  Receipt Date: 20130513
  Transmission Date: 20140414
  Serious: Yes (Other)
  Sender: FDA-Public Use
  Company Number: CA-WATSON-2013-07954

PATIENT
  Age: 43 Year
  Sex: Male

DRUGS (2)
  1. RAPAFLO-CANADA (WATSON LABORATORIES) [Suspect]
     Indication: PROSTATIC ADENOMA
     Dosage: 8 MG, DAILY
     Route: 048
     Dates: start: 201301, end: 201301
  2. RAPAFLO-CANADA (WATSON LABORATORIES) [Suspect]
     Dosage: 8 MG, DAILY
     Route: 048
     Dates: start: 20130423, end: 20130426

REACTIONS (3)
  - Suicidal behaviour [Unknown]
  - Anger [Unknown]
  - Depression [Unknown]
